FAERS Safety Report 25777189 (Version 7)
Quarter: 2025Q4

REPORT INFORMATION
  Report Type: Spontaneous
  Country: JP (occurrence: JP)
  Receive Date: 20250909
  Receipt Date: 20251225
  Transmission Date: 20260118
  Serious: Yes (Hospitalization, Other)
  Sender: AMGEN
  Company Number: JP-AMGEN-JPNSP2025174629

PATIENT
  Age: 71 Year
  Sex: Female
  Weight: 49 kg

DRUGS (11)
  1. OTEZLA [Suspect]
     Active Substance: APREMILAST
     Indication: Palmoplantar pustulosis
     Dosage: 60 MILLIGRAM, QD
     Route: 048
     Dates: start: 20241016, end: 20250815
  2. OTEZLA [Suspect]
     Active Substance: APREMILAST
     Indication: Psoriasis
     Dosage: 60 MILLIGRAM, QD
     Route: 048
     Dates: start: 20250825, end: 20250914
  3. OTEZLA [Suspect]
     Active Substance: APREMILAST
     Dosage: UNK
     Route: 048
     Dates: start: 2025, end: 20251001
  4. OXAROL [Concomitant]
     Active Substance: MAXACALCITOL
     Indication: Palmoplantar pustulosis
     Dosage: 25 UNK, QD,
  5. OXAROL [Concomitant]
     Active Substance: MAXACALCITOL
     Indication: Psoriasis
  6. CLOBETASOL [Concomitant]
     Active Substance: CLOBETASOL
     Indication: Palmoplantar pustulosis
     Dosage: 0.05 UNK, QD
  7. CLOBETASOL [Concomitant]
     Active Substance: CLOBETASOL
     Indication: Psoriasis
  8. Prostandin [Concomitant]
     Indication: Palmoplantar pustulosis
     Dosage: UNK UNK, QD
  9. Prostandin [Concomitant]
     Indication: Psoriasis
  10. Omega [Concomitant]
     Dosage: UNK
  11. SKYRIZI [Concomitant]
     Active Substance: RISANKIZUMAB-RZAA
     Dosage: 150 MILLIGRAM

REACTIONS (2)
  - Alopecia [Recovered/Resolved]
  - Palmoplantar pustulosis [Recovering/Resolving]

NARRATIVE: CASE EVENT DATE: 20250701
